FAERS Safety Report 4775515-7 (Version None)
Quarter: 2005Q3

REPORT INFORMATION
  Report Type: 
  Country: None (occurrence: None)
  Receive Date: 20050922
  Receipt Date: 20050912
  Transmission Date: 20060218
  Serious: Yes (Death)
  Sender: FDA-Public Use
  Company Number: US-JNJFOC-20050306289

PATIENT
  Sex: Male

DRUGS (13)
  1. INFLIXIMAB [Suspect]
     Indication: RHEUMATOID ARTHRITIS
     Route: 042
  2. CELEBREX [Concomitant]
  3. PREDNISONE [Concomitant]
  4. ASPIRIN [Concomitant]
  5. MONOPRIL [Concomitant]
  6. ARAVA [Concomitant]
  7. LIPITOR [Concomitant]
  8. DETROL [Concomitant]
  9. LANSOPRAZOLE [Concomitant]
  10. IMURAN [Concomitant]
  11. CALCIUM GLUCONATE [Concomitant]
  12. ASCORBIC ACID [Concomitant]
  13. INSULIN [Concomitant]

REACTIONS (1)
  - INTERSTITIAL LUNG DISEASE [None]
